FAERS Safety Report 6276562-9 (Version None)
Quarter: 2009Q3

REPORT INFORMATION
  Report Type: 
  Country: None (occurrence: None)
  Receive Date: 20090722
  Receipt Date: 20010227
  Transmission Date: 20100115
  Serious: No
  Sender: FDA-Public Use
  Company Number: 2001COU0334

PATIENT
  Age: 28 Year
  Sex: Female

DRUGS (1)
  1. COUMADIN [Suspect]
     Indication: ADVERSE EVENT
     Dosage: 1 MG AES#DOSE_FREQUENCY: DLY
     Route: 048
     Dates: start: 20010109

REACTIONS (1)
  - PREGNANCY [None]
